FAERS Safety Report 11108805 (Version 1)
Quarter: 2015Q2

REPORT INFORMATION
  Report Type: Spontaneous
  Country: US (occurrence: None)
  Receive Date: 20150511
  Receipt Date: 20150511
  Transmission Date: 20150821
  Serious: No
  Sender: FDA-Public Use
  Company Number: None

PATIENT
  Age: 15 Year
  Sex: Female
  Weight: 63.5 kg

DRUGS (1)
  1. NEXPLANON [Suspect]
     Active Substance: ETONOGESTREL

REACTIONS (13)
  - Headache [None]
  - Weight increased [None]
  - Implant site pruritus [None]
  - Menstruation irregular [None]
  - Dizziness [None]
  - Rash generalised [None]
  - Abdominal pain upper [None]
  - Heart rate increased [None]
  - Hot flush [None]
  - Implant site bruising [None]
  - Malaise [None]
  - Hypertension [None]
  - Therapy cessation [None]

NARRATIVE: CASE EVENT DATE: 20150508
